FAERS Safety Report 9134750 (Version 2)
Quarter: 2013Q3

REPORT INFORMATION
  Report Type: Spontaneous
  Country: US (occurrence: None)
  Receive Date: 20130205
  Receipt Date: 20130815
  Transmission Date: 20140515
  Serious: Yes (Death)
  Sender: FDA-Public Use
  Company Number: 1301-130

PATIENT
  Age: 95 Year
  Sex: 0

DRUGS (1)
  1. EYLEA (AFLIBERCEPT)(INJECTION)(AFLIBERCEPT) [Suspect]
     Indication: AGE-RELATED MACULAR DEGENERATION
     Dosage: 2 MG, 1 IN 6 WK, INTRAVITREAL
     Dates: start: 20120111, end: 201210

REACTIONS (1)
  - Death [None]
